FAERS Safety Report 9129007 (Version 1)
Quarter: 2013Q1

REPORT INFORMATION
  Report Type: Spontaneous
  Country: US (occurrence: US)
  Receive Date: 20130125
  Receipt Date: 20130125
  Transmission Date: 20140127
  Serious: No
  Sender: FDA-Public Use
  Company Number: US-BRACCO-008680

PATIENT
  Age: 81 Year
  Sex: Female
  Weight: 58 kg

DRUGS (4)
  1. MULTIHANCE [Suspect]
     Indication: NUCLEAR MAGNETIC RESONANCE IMAGING
     Route: 042
     Dates: start: 20121002, end: 20121002
  2. MULTIHANCE [Suspect]
     Indication: SPINAL COLUMN STENOSIS
     Route: 042
     Dates: start: 20121002, end: 20121002
  3. PRAVACHOL [Concomitant]
  4. MELOXICAM [Concomitant]

REACTIONS (1)
  - Oropharyngeal discomfort [Recovered/Resolved]
